FAERS Safety Report 6465153-2 (Version None)
Quarter: 2009Q4

REPORT INFORMATION
  Report Type: 
  Country: None (occurrence: None)
  Receive Date: 20091124
  Receipt Date: 20091117
  Transmission Date: 20100525
  Serious: Yes (Hospitalization)
  Sender: FDA-Public Use
  Company Number: TCI2009A04619

PATIENT
  Age: 7 Decade
  Sex: Female

DRUGS (2)
  1. ACTOS [Suspect]
     Indication: DIABETES MELLITUS
     Dosage: PER ORAL
     Route: 048
     Dates: start: 20050101, end: 20091116
  2. AMLODIPINE [Concomitant]

REACTIONS (2)
  - OBESITY [None]
  - PANCREAS LIPOMATOSIS [None]
